FAERS Safety Report 6341297-0 (Version None)
Quarter: 2009Q3

REPORT INFORMATION
  Report Type: 
  Country: None (occurrence: None)
  Receive Date: 20090904
  Receipt Date: 20090831
  Transmission Date: 20100115
  Serious: Yes (Other)
  Sender: FDA-Public Use
  Company Number: FR-JNJFOC-20090900640

PATIENT
  Age: 34 Year
  Sex: Female

DRUGS (5)
  1. EPITOMAX [Suspect]
     Indication: EPILEPSY
     Route: 048
  2. TEGRETOL [Suspect]
     Indication: EPILEPSY
     Route: 065
  3. URBANYL [Suspect]
     Indication: EPILEPSY
     Route: 065
  4. LAMICTAL [Suspect]
     Indication: EPILEPSY
     Route: 065
  5. MIRENA [Suspect]
     Indication: CONTRACEPTION
     Route: 065

REACTIONS (3)
  - DRUG EXPOSURE DURING PREGNANCY [None]
  - PREMATURE LABOUR [None]
  - PREMATURE RUPTURE OF MEMBRANES [None]
